FAERS Safety Report 21195861 (Version 2)
Quarter: 2022Q3

REPORT INFORMATION
  Report Type: Spontaneous
  Country: IT (occurrence: IT)
  Receive Date: 20220810
  Receipt Date: 20220827
  Transmission Date: 20221027
  Serious: Yes (Hospitalization, Other)
  Sender: FDA-Public Use
  Company Number: IT-SA-2022SA323596

PATIENT
  Age: 21 Year
  Sex: Male

DRUGS (3)
  1. DUPIXENT [Suspect]
     Active Substance: DUPILUMAB
     Indication: Dermatitis atopic
     Dosage: 600 MG
     Route: 058
     Dates: start: 20181211, end: 201812
  2. DUPIXENT [Suspect]
     Active Substance: DUPILUMAB
     Dosage: 300 MG, QOW
     Route: 058
     Dates: start: 201812, end: 20210316
  3. CYCLOSPORINE [Concomitant]
     Active Substance: CYCLOSPORINE
     Indication: Dermatitis atopic
     Dosage: UNK

REACTIONS (10)
  - Relapsing-remitting multiple sclerosis [Recovered/Resolved]
  - Paraesthesia [Recovered/Resolved]
  - Ataxia [Recovered/Resolved]
  - Lhermitte^s sign [Recovered/Resolved]
  - Monoparesis [Recovered/Resolved]
  - Decreased vibratory sense [Recovered/Resolved]
  - Spinal cord injury cervical [Recovered/Resolved]
  - Spinal cord injury thoracic [Recovered/Resolved]
  - White matter lesion [Recovered/Resolved]
  - Pleocytosis [Recovered/Resolved]

NARRATIVE: CASE EVENT DATE: 20200701
